FAERS Safety Report 4745222-5 (Version None)
Quarter: 2005Q3

REPORT INFORMATION
  Report Type: 
  Country: None (occurrence: None)
  Receive Date: 20050815
  Receipt Date: 20050803
  Transmission Date: 20060218
  Serious: Yes (Other)
  Sender: FDA-Public Use
  Company Number: US-BRISTOL-MYERS SQUIBB COMPANY-13061809

PATIENT
  Age: 15 Year
  Sex: Female
  Weight: 50 kg

DRUGS (4)
  1. ATAZANAVIR [Suspect]
     Indication: HIV INFECTION
     Route: 048
     Dates: start: 20040624
  2. VIDEX EC [Suspect]
     Route: 048
     Dates: start: 20040624
  3. EMTRIVA [Suspect]
     Route: 048
     Dates: start: 20040624
  4. DEPO-PROVERA [Concomitant]
     Route: 030

REACTIONS (1)
  - BLOOD BILIRUBIN UNCONJUGATED INCREASED [None]
